FAERS Safety Report 9443400 (Version 1)
Quarter: 2013Q3

REPORT INFORMATION
  Report Type: Spontaneous
  Country: US (occurrence: US)
  Receive Date: 20130806
  Receipt Date: 20130806
  Transmission Date: 20140515
  Serious: Yes (Hospitalization)
  Sender: FDA-Public Use
  Company Number: US-GLAXOSMITHKLINE-B0910776A

PATIENT
  Age: 69 Year
  Sex: Male
  Weight: 204.5 kg

DRUGS (1)
  1. AVANDIA [Suspect]
     Indication: DIABETES MELLITUS
     Dosage: 8MG PER DAY
     Route: 048
     Dates: start: 2000, end: 2009

REACTIONS (3)
  - Cardiac failure congestive [Unknown]
  - Renal failure acute [Unknown]
  - Acute myocardial infarction [Unknown]
